FAERS Safety Report 9206448 (Version 1)
Quarter: 2013Q2

REPORT INFORMATION
  Report Type: Spontaneous
  Country: US (occurrence: None)
  Receive Date: 20130401
  Receipt Date: 20130401
  Transmission Date: 20140414
  Serious: Yes (Life-Threatening, Hospitalization)
  Sender: FDA-Public Use
  Company Number: 2013US-004621

PATIENT
  Age: 70 Year
  Sex: Male
  Weight: 82.5 kg

DRUGS (13)
  1. OMONTYS (PEGINESATIDE) SOLUTION FOR INJECTION [Suspect]
     Route: 042
     Dates: start: 20130108, end: 20130108
  2. CALCIUM ACETATE (CALCIUM ACETATE) [Concomitant]
  3. SENSIPAR (CINCALCET HYDROCHLORIDE) [Concomitant]
  4. FELODIPINE (FELODIPINE) [Concomitant]
  5. IMDUR (ISOSORBIDE MONONITRATE) [Concomitant]
  6. SYNTHROID (LEVOTHYROXINE SODIUM) [Concomitant]
  7. METOPROLOL (METOPROLOL) [Concomitant]
  8. NEPHROCAPS (ASCORBIC ACID, BIOTIN, CYANOCOBALAMIN, FOLIC ACID, NICOTINAMIDE, PANOTHENIC ACID, PYRIDOXINE HYDROCHLORIDE, RIBOFLAVIN, THIAMINE HYDROCHLORIDE) [Concomitant]
  9. SIMVASTATIN (SIMVASTATIN) [Concomitant]
  10. FLOMAX (MORNIFLUMATE) [Concomitant]
  11. WARFARIN (WARFARIN) [Concomitant]
  12. VENOFER [Concomitant]
  13. HEPARIN (HEPARIN) [Concomitant]

REACTIONS (8)
  - Drug hypersensitivity [None]
  - Malaise [None]
  - Dyspnoea [None]
  - Oxygen saturation decreased [None]
  - Feeling cold [None]
  - Cold sweat [None]
  - Cyanosis [None]
  - Chest pain [None]
